FAERS Safety Report 12240760 (Version 1)
Quarter: 2016Q2

REPORT INFORMATION
  Report Type: Spontaneous
  Country: US (occurrence: US)
  Receive Date: 20160406
  Receipt Date: 20160406
  Transmission Date: 20160815
  Serious: No
  Sender: FDA-Public Use
  Company Number: US-TEVA-585769USA

PATIENT
  Sex: Female
  Weight: 72.64 kg

DRUGS (1)
  1. SUCRALFATE. [Suspect]
     Active Substance: SUCRALFATE
     Indication: GASTROOESOPHAGEAL REFLUX DISEASE
     Dates: start: 20150806

REACTIONS (2)
  - Product substitution issue [Unknown]
  - Abdominal pain upper [Unknown]
